FAERS Safety Report 9191271 (Version 1)
Quarter: 2013Q1

REPORT INFORMATION
  Report Type: Spontaneous
  Country: US (occurrence: US)
  Receive Date: 20130326
  Receipt Date: 20130326
  Transmission Date: 20140127
  Serious: No
  Sender: FDA-Public Use
  Company Number: US-ASTRAZENECA-2013SE16691

PATIENT
  Age: 66 Year
  Sex: Female

DRUGS (4)
  1. CRESTOR [Suspect]
     Indication: BLOOD CHOLESTEROL ABNORMAL
     Route: 048
  2. REVLIMID [Interacting]
     Indication: PLASMA CELL MYELOMA
     Route: 048
     Dates: start: 20100331
  3. LIVALO [Concomitant]
     Indication: BLOOD CHOLESTEROL ABNORMAL
  4. PLAVIX [Concomitant]

REACTIONS (2)
  - Drug interaction [Unknown]
  - Muscle spasms [Unknown]
